FAERS Safety Report 8510016-1 (Version None)
Quarter: 2012Q3

REPORT INFORMATION
  Report Type: 
  Country: None (occurrence: None)
  Receive Date: 20120713
  Receipt Date: 20120712
  Transmission Date: 20120928
  Serious: Yes (Death)
  Sender: FDA-Public Use
  Company Number: GB-ABBOTT-12P-167-0939533-00

PATIENT
  Sex: Female

DRUGS (1)
  1. HUMIRA [Suspect]
     Indication: RHEUMATOID ARTHRITIS
     Route: 058
     Dates: start: 20120316

REACTIONS (6)
  - DYSPNOEA [None]
  - SKIN EXFOLIATION [None]
  - INJECTION SITE ERYTHEMA [None]
  - PALPITATIONS [None]
  - DEATH [None]
  - CHAPPED LIPS [None]
